FAERS Safety Report 8870835 (Version 1)
Quarter: 2012Q4

REPORT INFORMATION
  Report Type: Spontaneous
  Country: US (occurrence: None)
  Receive Date: 20121026
  Receipt Date: 20121026
  Transmission Date: 20130627
  Serious: Yes (Hospitalization)
  Sender: FDA-Public Use
  Company Number: None

PATIENT
  Age: 42 Year
  Sex: Male

DRUGS (10)
  1. CARBAMAZEPINE [Suspect]
     Indication: SEIZURES
     Dosage: at least 5 wks
     Route: 048
  2. BENZTROPINE [Concomitant]
  3. LEXAPRO [Concomitant]
  4. FUROSEMIDE [Concomitant]
  5. HALOPERIDOL [Concomitant]
  6. LACTULOSE [Concomitant]
  7. OMEPRAZOLE [Concomitant]
  8. RIFAXIMIN [Concomitant]
  9. SPIRONOLACTONE [Concomitant]
  10. TOLVAPTAN [Concomitant]

REACTIONS (4)
  - Dizziness [None]
  - Mental status changes [None]
  - Hyponatraemia [None]
  - Hepatic encephalopathy [None]
